FAERS Safety Report 10267067 (Version 1)
Quarter: 2014Q2

REPORT INFORMATION
  Report Type: Spontaneous
  Country: US (occurrence: None)
  Receive Date: 20140625
  Receipt Date: 20140625
  Transmission Date: 20141212
  Serious: Yes (Other)
  Sender: FDA-Public Use
  Company Number: UNT-2014-002403

PATIENT
  Age: 73 Year
  Sex: Female
  Weight: 81.6 kg

DRUGS (4)
  1. REMODULIN [Suspect]
     Indication: PULMONARY ARTERIAL HYPERTENSION
     Dosage: CONTINUING
     Route: 058
     Dates: start: 20131018
  2. TYVASO [Suspect]
     Indication: PRODUCT USED FOR UNKNOWN INDICATION
     Route: 055
  3. TRACLEER (BOSENTAN) [Concomitant]
  4. ADCIRCA (TADALAFIL) UNKNOWN [Concomitant]

REACTIONS (2)
  - Anaemia [None]
  - Diarrhoea [None]
